FAERS Safety Report 10085973 (Version 4)
Quarter: 2015Q2

REPORT INFORMATION
  Report Type: Report from Study
  Country: TR (occurrence: TR)
  Receive Date: 20140418
  Receipt Date: 20150403
  Transmission Date: 20150821
  Serious: Yes (Hospitalization, Other)
  Sender: FDA-Public Use
  Company Number: TR-ROCHE-1379129

PATIENT

DRUGS (3)
  1. RIBAVIRIN. [Suspect]
     Active Substance: RIBAVIRIN
     Indication: CHRONIC HEPATITIS C
     Route: 065
  2. TELAPREVIR [Suspect]
     Active Substance: TELAPREVIR
     Indication: CHRONIC HEPATITIS C
     Route: 065
  3. PEG-INTERFERON ALFA 2A [Suspect]
     Active Substance: PEGINTERFERON ALFA-2A
     Indication: CHRONIC HEPATITIS C
     Route: 065

REACTIONS (10)
  - Leukopenia [Unknown]
  - Drug intolerance [Unknown]
  - Anorectal discomfort [Unknown]
  - Anaemia [Unknown]
  - Pruritus [Unknown]
  - No therapeutic response [Unknown]
  - Rash [Unknown]
  - Thrombocytopenia [Unknown]
  - Nephropathy toxic [Recovered/Resolved]
  - Dysgeusia [Unknown]
